FAERS Safety Report 4652675-X (Version None)
Quarter: 2005Q2

REPORT INFORMATION
  Report Type: 
  Country: None (occurrence: None)
  Receive Date: 20050502
  Receipt Date: 20050418
  Transmission Date: 20051028
  Serious: Yes (Hospitalization)
  Sender: FDA-Public Use
  Company Number: 2005062223

PATIENT
  Age: 51 Year
  Sex: Female

DRUGS (12)
  1. CLINDAMYCIN HYDROCHLORIDE [Suspect]
     Indication: ILL-DEFINED DISORDER
     Dosage: 900 MG (300 MG, 3 IN 1 D), ORAL
     Route: 048
  2. VALPROIC ACID [Concomitant]
  3. PAROXETINE HCL [Concomitant]
  4. LEVETIRACETAM [Concomitant]
  5. DIAZEPAM [Concomitant]
  6. ATORVASTATIN (ATORVASTATIN) [Concomitant]
  7. POTASSIUM CHLORIDE [Concomitant]
  8. FUROSEMIDE [Concomitant]
  9. LISINOPRIL [Concomitant]
  10. OMEPRAZOLE [Concomitant]
  11. SALBUTAMOL (SALBUTAMOL) [Concomitant]
  12. COMBIVENT [Concomitant]

REACTIONS (2)
  - CONDITION AGGRAVATED [None]
  - CONVULSION [None]
